FAERS Safety Report 13937392 (Version 2)
Quarter: 2017Q3

REPORT INFORMATION
  Report Type: Report from Study
  Country: BR (occurrence: BR)
  Receive Date: 20170905
  Receipt Date: 20170908
  Transmission Date: 20171127
  Serious: Yes (Other)
  Sender: FDA-Public Use
  Company Number: PHHY2017BR126783

PATIENT
  Sex: Female

DRUGS (2)
  1. GLIVEC [Suspect]
     Active Substance: IMATINIB MESYLATE
     Indication: CHRONIC MYELOID LEUKAEMIA
     Route: 065
  2. TASIGNA [Suspect]
     Active Substance: NILOTINIB
     Indication: CHRONIC MYELOID LEUKAEMIA
     Route: 065

REACTIONS (15)
  - Decreased immune responsiveness [Unknown]
  - Dengue fever [Unknown]
  - Cough [Unknown]
  - Labyrinthitis [Unknown]
  - Fatigue [Unknown]
  - Anaemia [Unknown]
  - Dyspnoea [Unknown]
  - Dizziness [Unknown]
  - Leiomyoma [Unknown]
  - Haemorrhage urinary tract [Unknown]
  - Arrhythmia [Unknown]
  - Mass [Unknown]
  - Swelling [Unknown]
  - Asthenia [Unknown]
  - Weight decreased [Unknown]
